FAERS Safety Report 12966059 (Version 1)
Quarter: 2016Q4

REPORT INFORMATION
  Report Type: Spontaneous
  Country: US (occurrence: US)
  Receive Date: 20161122
  Receipt Date: 20161122
  Transmission Date: 20170207
  Serious: Yes (Other)
  Sender: FDA-Public Use
  Company Number: US-SUNOVION-2016SUN002919

PATIENT
  Age: 34 Year
  Sex: Male
  Weight: 92.97 kg

DRUGS (3)
  1. LAMOTRIGINE. [Concomitant]
     Active Substance: LAMOTRIGINE
     Dosage: 400 MG, QD
     Route: 048
  2. LATUDA [Suspect]
     Active Substance: LURASIDONE HYDROCHLORIDE
     Indication: BIPOLAR DISORDER
     Dosage: 40 MG, QD
     Route: 048
     Dates: start: 20161116, end: 20161117
  3. LITHIUM. [Concomitant]
     Active Substance: LITHIUM
     Indication: BIPOLAR DISORDER
     Dosage: 2100 MG, QD
     Route: 048

REACTIONS (9)
  - Abasia [Unknown]
  - Trismus [Unknown]
  - Dystonia [Unknown]
  - Restlessness [Unknown]
  - Tongue movement disturbance [Unknown]
  - Dysarthria [Not Recovered/Not Resolved]
  - Oral disorder [Unknown]
  - Dissociation [Unknown]
  - Dyskinesia [Not Recovered/Not Resolved]

NARRATIVE: CASE EVENT DATE: 20161117
